FAERS Safety Report 5245892-1 (Version None)
Quarter: 2007Q1

REPORT INFORMATION
  Report Type: 
  Country: None (occurrence: None)
  Receive Date: 20070216
  Receipt Date: 20070201
  Transmission Date: 20070707
  Serious: Yes (Life-Threatening)
  Sender: FDA-Public Use
  Company Number: POMP-10938

PATIENT
  Age: 7 Month
  Sex: Male
  Weight: 6.9 kg

DRUGS (11)
  1. MYOZYME [Suspect]
     Indication: GLYCOGEN STORAGE DISEASE TYPE II
     Dosage: 20 MG/KG Q2WKS IV
     Route: 042
     Dates: start: 20061107
  2. DIPHENHYDRAMINE HCL [Concomitant]
  3. ACETAMINOPHEN [Concomitant]
  4. POTASSIUM CHLORIDE [Concomitant]
  5. FAMOTIDINE [Concomitant]
  6. DIGOXIN [Concomitant]
  7. PROPRANOLOL [Concomitant]
  8. FUROSEMIDE [Concomitant]
  9. HYDROCHLOROTHIAZIDE [Concomitant]
  10. SPIRONOLACTONE [Concomitant]
  11. VANCOMYCIN HYDROCHLORIDE [Concomitant]

REACTIONS (12)
  - BLOOD MAGNESIUM INCREASED [None]
  - BLOOD PRESSURE DECREASED [None]
  - CARDIO-RESPIRATORY ARREST [None]
  - HEART RATE DECREASED [None]
  - HYPERSENSITIVITY [None]
  - INFECTION [None]
  - INFUSION RELATED REACTION [None]
  - RESPIRATORY DISTRESS [None]
  - RESPIRATORY RATE INCREASED [None]
  - SOMNOLENCE [None]
  - TACHYCARDIA [None]
  - WHEEZING [None]
